FAERS Safety Report 16318481 (Version 1)
Quarter: 2019Q2

REPORT INFORMATION
  Report Type: Spontaneous
  Country: US (occurrence: US)
  Receive Date: 20190516
  Receipt Date: 20190516
  Transmission Date: 20190711
  Serious: No
  Sender: FDA-Public Use
  Company Number: US-BAUSCH-BL-2018-011994

PATIENT
  Age: 39 Year
  Sex: Male

DRUGS (3)
  1. DIHYDROERGOTAMINE MESYLATE. [Suspect]
     Active Substance: DIHYDROERGOTAMINE MESYLATE
     Indication: CLUSTER HEADACHE
     Dosage: INJECTION
     Route: 065
     Dates: start: 20170610
  2. DIHYDROERGOTAMINE MESYLATE. [Suspect]
     Active Substance: DIHYDROERGOTAMINE MESYLATE
     Dosage: INJECTION
     Route: 065
     Dates: start: 20170611
  3. DIHYDROERGOTAMINE MESYLATE. [Suspect]
     Active Substance: DIHYDROERGOTAMINE MESYLATE
     Dosage: INJECTION
     Route: 065
     Dates: start: 20170613, end: 20170613

REACTIONS (1)
  - Drug ineffective [Recovered/Resolved]

NARRATIVE: CASE EVENT DATE: 20170610
